FAERS Safety Report 8434983-X (Version None)
Quarter: 2012Q2

REPORT INFORMATION
  Report Type: 
  Country: None (occurrence: None)
  Receive Date: 20120608
  Receipt Date: 20120525
  Transmission Date: 20120825
  Serious: Yes (Hospitalization)
  Sender: FDA-Public Use
  Company Number: TPA2012A02747

PATIENT
  Age: 61 Year
  Sex: Female

DRUGS (7)
  1. COLCHICINE [Concomitant]
  2. CRESTOR [Concomitant]
  3. FUROSEMIDE [Concomitant]
  4. APROVEL (IRBESARTAN) [Concomitant]
  5. ADENURIC (FEBUXOSTAT) [Suspect]
     Indication: HYPERURICAEMIA
     Dosage: ORAL
     Route: 048
     Dates: start: 20111101, end: 20120118
  6. ISOPTIN [Concomitant]
  7. PREVISCAN (FLUINDIONE) [Concomitant]

REACTIONS (2)
  - CHOLESTASIS [None]
  - ARTHRALGIA [None]
